FAERS Safety Report 24652872 (Version 2)
Quarter: 2024Q4

REPORT INFORMATION
  Report Type: Spontaneous
  Country: US (occurrence: US)
  Receive Date: 20241122
  Receipt Date: 20241129
  Transmission Date: 20250115
  Serious: No
  Sender: NOVARTIS
  Company Number: US-002147023-NVSC2024US137818

PATIENT
  Age: 16 Year
  Sex: Male
  Weight: 76 kg

DRUGS (3)
  1. FABHALTA [Suspect]
     Active Substance: IPTACOPAN HYDROCHLORIDE
     Indication: Nephrotic syndrome
     Dosage: 200 MG, BID
     Route: 048
     Dates: start: 20240617
  2. FABHALTA [Suspect]
     Active Substance: IPTACOPAN HYDROCHLORIDE
     Indication: Glomerulonephritis proliferative
  3. FABHALTA [Suspect]
     Active Substance: IPTACOPAN HYDROCHLORIDE
     Indication: Renal transplant

REACTIONS (3)
  - Stress [Unknown]
  - Depression [Unknown]
  - Off label use [Unknown]

NARRATIVE: CASE EVENT DATE: 20240601
